FAERS Safety Report 8097657 (Version 3)
Quarter: 2013Q1

REPORT INFORMATION
  Report Type: Report from Study
  Country: US (occurrence: US)
  Receive Date: 20110819
  Receipt Date: 20130208
  Transmission Date: 20140127
  Serious: Yes (Hospitalization)
  Sender: FDA-Public Use
  Company Number: US-AMGEN-USACT2011041287

PATIENT
  Age: 66 Year
  Sex: Female

DRUGS (11)
  1. DARBEPOETIN ALFA [Suspect]
     Indication: CARDIAC FAILURE CHRONIC
     Dates: start: 20070201
  2. MS CONTIN [Concomitant]
  3. GABAPENTIN [Concomitant]
  4. ALLOPURINOL [Concomitant]
  5. NORCO [Concomitant]
  6. LANTUS [Concomitant]
  7. NOVOLOG [Concomitant]
  8. LASIX [Concomitant]
  9. PLAVIX [Concomitant]
  10. BABY ASPIRIN [Concomitant]
  11. DIGOXIN [Concomitant]

REACTIONS (1)
  - Mental status changes [Recovered/Resolved]
